FAERS Safety Report 16713089 (Version 6)
Quarter: 2020Q4

REPORT INFORMATION
  Report Type: Spontaneous
  Country: GR (occurrence: GR)
  Receive Date: 20190817
  Receipt Date: 20201109
  Transmission Date: 20210113
  Serious: Yes (Death, Life-Threatening, Hospitalization, Other)
  Sender: FDA-Public Use
  Company Number: GR-ACCORD-151381

PATIENT
  Age: 66 Year
  Sex: Female
  Weight: 105 kg

DRUGS (2)
  1. CAPECITABINE. [Suspect]
     Active Substance: CAPECITABINE
     Indication: ADENOCARCINOMA OF COLON
     Dosage: ADMINISTERED TWICE DAILY FROM D1 TO D14, 21-DAY CYCLE (2000 MG/M2)
     Route: 048
     Dates: start: 20181010, end: 20181019
  2. OXALIPLATIN. [Concomitant]
     Active Substance: OXALIPLATIN
     Indication: ADENOCARCINOMA OF COLON
     Dosage: ON D1 (ON DAY 1)

REACTIONS (21)
  - Stomatitis [Not Recovered/Not Resolved]
  - Pneumonia [Fatal]
  - Atrial flutter [Unknown]
  - Pericardial effusion [Not Recovered/Not Resolved]
  - Colitis [Not Recovered/Not Resolved]
  - Respiratory failure [Fatal]
  - Neurotoxicity [Not Recovered/Not Resolved]
  - Cardiac failure [Not Recovered/Not Resolved]
  - Nausea [Not Recovered/Not Resolved]
  - Diverticulitis [Not Recovered/Not Resolved]
  - Steatohepatitis [Not Recovered/Not Resolved]
  - Toxicity to various agents [Fatal]
  - Diarrhoea haemorrhagic [Not Recovered/Not Resolved]
  - Enterocolitis haemorrhagic [Not Recovered/Not Resolved]
  - Congestive cardiomyopathy [Not Recovered/Not Resolved]
  - Pancytopenia [Recovered/Resolved]
  - Myelosuppression [Recovered/Resolved]
  - Cardiotoxicity [Fatal]
  - Septic shock [Fatal]
  - Generalised tonic-clonic seizure [Not Recovered/Not Resolved]
  - Cardiogenic shock [Unknown]

NARRATIVE: CASE EVENT DATE: 20181022
